FAERS Safety Report 8281273-4 (Version None)
Quarter: 2012Q2

REPORT INFORMATION
  Report Type: 
  Country: None (occurrence: None)
  Receive Date: 20120413
  Receipt Date: 20120405
  Transmission Date: 20120825
  Serious: Yes (Hospitalization, Other)
  Sender: FDA-Public Use
  Company Number: US-AMGEN-USASP2012021812

PATIENT
  Age: 57 Year
  Sex: Male

DRUGS (1)
  1. ENBREL [Suspect]
     Indication: RHEUMATOID ARTHRITIS
     Dosage: 50 MG, QWK
     Dates: start: 20111101

REACTIONS (5)
  - GAIT DISTURBANCE [None]
  - PAIN [None]
  - JOINT DESTRUCTION [None]
  - JOINT EFFUSION [None]
  - HIP ARTHROPLASTY [None]
